FAERS Safety Report 5485482-9 (Version None)
Quarter: 2007Q4

REPORT INFORMATION
  Report Type: 
  Country: None (occurrence: None)
  Receive Date: 20071011
  Receipt Date: 20071002
  Transmission Date: 20080405
  Serious: Yes (Hospitalization)
  Sender: FDA-Public Use
  Company Number: 2007-04477

PATIENT
  Age: 48 Year
  Sex: Male

DRUGS (1)
  1. COLCHICUM JTL LIQ [Suspect]
     Indication: GOUTY ARTHRITIS
     Dosage: MORE THAN 20 TABS IN ONE DAY, ORAL
     Route: 048
     Dates: start: 20050727, end: 20050727

REACTIONS (6)
  - ELECTROLYTE IMBALANCE [None]
  - HYPOCALCAEMIA [None]
  - HYPOMAGNESAEMIA [None]
  - HYPOPHOSPHATAEMIA [None]
  - OVERDOSE [None]
  - RENAL FAILURE ACUTE [None]
